FAERS Safety Report 9100371 (Version 1)
Quarter: 2013Q1

REPORT INFORMATION
  Report Type: Spontaneous
  Country: CH (occurrence: CH)
  Receive Date: 20130215
  Receipt Date: 20130215
  Transmission Date: 20140127
  Serious: Yes (Life-Threatening, Hospitalization, Other)
  Sender: FDA-Public Use
  Company Number: CH-ABBOTT-12P-151-0916631-00

PATIENT
  Age: 77 Year
  Sex: Female

DRUGS (10)
  1. ISOPTIN [Suspect]
     Indication: PRODUCT USED FOR UNKNOWN INDICATION
     Route: 048
     Dates: start: 20120106, end: 20120109
  2. CONCOR [Interacting]
     Indication: ATRIAL FIBRILLATION
     Route: 048
  3. CONCOR [Interacting]
     Indication: CARDIAC FAILURE CONGESTIVE
     Dosage: DOSE INCREASED TO TREAT ALSO DECOMPENSATED BIVENTRICULAR CARDIAC INSUFFICIENCY
     Route: 048
     Dates: end: 20120109
  4. MARCOUMAR [Concomitant]
     Indication: PRODUCT USED FOR UNKNOWN INDICATION
     Route: 048
     Dates: end: 20120109
  5. TOREM [Concomitant]
     Indication: PRODUCT USED FOR UNKNOWN INDICATION
     Route: 048
     Dates: end: 20120109
  6. RAMIPRIL [Concomitant]
     Indication: PRODUCT USED FOR UNKNOWN INDICATION
     Route: 048
     Dates: end: 20120109
  7. SORTIS [Concomitant]
     Indication: PRODUCT USED FOR UNKNOWN INDICATION
     Route: 048
  8. REMERON [Concomitant]
     Indication: PRODUCT USED FOR UNKNOWN INDICATION
     Route: 048
  9. PANTOPRAZOL [Concomitant]
     Indication: PRODUCT USED FOR UNKNOWN INDICATION
     Route: 048
  10. CYMBALTA [Concomitant]
     Indication: PRODUCT USED FOR UNKNOWN INDICATION
     Route: 048

REACTIONS (5)
  - Hepatic ischaemia [Recovering/Resolving]
  - Cardiogenic shock [Recovered/Resolved]
  - Blood pressure decreased [Recovered/Resolved]
  - Renal failure [Recovering/Resolving]
  - Drug interaction [Unknown]
